FAERS Safety Report 9970458 (Version 1)
Quarter: 2014Q1

REPORT INFORMATION
  Report Type: Spontaneous
  Country: ZM (occurrence: ZM)
  Receive Date: 20140306
  Receipt Date: 20140306
  Transmission Date: 20141002
  Serious: Yes (Life-Threatening, Hospitalization, Other)
  Sender: FDA-Public Use
  Company Number: ZM-009507513-1403ZMB000693

PATIENT
  Age: 26 Year
  Sex: Female

DRUGS (6)
  1. RALTEGRAVIR POTASSIUM [Suspect]
     Indication: ANTIRETROVIRAL THERAPY
     Dosage: 400 MG, BID (1 TAB BD), CHRONIC
     Route: 048
  2. MIGRIL [Interacting]
     Indication: MIGRAINE
     Dosage: 2 PRN, CHRONIC USE
     Route: 048
     Dates: start: 20140111
  3. DARUNAVIR [Interacting]
     Indication: ANTIRETROVIRAL THERAPY
     Dosage: 600 MG, BID (2 TABS BD), CHRONIC
     Route: 048
  4. RITONAVIR [Interacting]
     Indication: ANTIRETROVIRAL THERAPY
     Dosage: 100 MG, BID (1 TAB BD), CHRONIC
     Route: 048
  5. TENOFOVIR [Interacting]
     Indication: ANTIRETROVIRAL THERAPY
     Dosage: 1 NOCTE, CHRONIC
     Route: 048
  6. PANADOL [Suspect]
     Dosage: A FEW
     Dates: start: 20140111

REACTIONS (4)
  - Vasoconstriction [Recovering/Resolving]
  - Amputation [Recovering/Resolving]
  - Peripheral vascular disorder [Recovering/Resolving]
  - Drug interaction [Recovering/Resolving]
